FAERS Safety Report 8009421-1 (Version None)
Quarter: 2011Q4

REPORT INFORMATION
  Report Type: 
  Country: None (occurrence: None)
  Receive Date: 20111227
  Receipt Date: 20111220
  Transmission Date: 20120403
  Serious: Yes (Other)
  Sender: FDA-Public Use
  Company Number: US-ROCHE-802589

PATIENT
  Sex: Male

DRUGS (1)
  1. ACCUTANE [Suspect]
     Indication: ACNE
     Route: 065
     Dates: start: 19860101, end: 19880101

REACTIONS (3)
  - CROHN'S DISEASE [None]
  - COLITIS ULCERATIVE [None]
  - INTESTINAL HAEMORRHAGE [None]
